FAERS Safety Report 13000065 (Version 1)
Quarter: 2016Q4

REPORT INFORMATION
  Report Type: Spontaneous
  Country: US (occurrence: US)
  Receive Date: 20161205
  Receipt Date: 20161205
  Transmission Date: 20170207
  Serious: Yes (Other)
  Sender: FDA-Public Use
  Company Number: US-009507513-1612USA001240

PATIENT
  Age: 2 Month
  Sex: Male

DRUGS (1)
  1. DEXAMETHASONE. [Suspect]
     Active Substance: DEXAMETHASONE
     Dosage: 1 MG/KG, UNK
     Route: 042

REACTIONS (3)
  - Laryngeal oedema [Unknown]
  - Therapy non-responder [Unknown]
  - Obstructive airways disorder [Unknown]
